FAERS Safety Report 7524827-2 (Version None)
Quarter: 2011Q2

REPORT INFORMATION
  Report Type: 
  Country: None (occurrence: None)
  Receive Date: 20110525
  Receipt Date: 20110516
  Transmission Date: 20111010
  Serious: Yes (Other)
  Sender: FDA-Public Use
  Company Number: 2011SP022321

PATIENT
  Sex: Female

DRUGS (1)
  1. IMPLANON [Suspect]
     Indication: CONTRACEPTION
     Dosage: 1 DF;SC
     Route: 058

REACTIONS (3)
  - IMPLANT SITE PHLEBITIS [None]
  - WEIGHT INCREASED [None]
  - IMPLANT SITE FIBROSIS [None]
